FAERS Safety Report 16877508 (Version 1)
Quarter: 2019Q4

REPORT INFORMATION
  Report Type: Spontaneous
  Country: US (occurrence: US)
  Receive Date: 20191002
  Receipt Date: 20191002
  Transmission Date: 20200122
  Serious: Yes (Hospitalization)
  Sender: FDA-Public Use
  Company Number: US-HIKMA PHARMACEUTICALS USA INC.-US-H14001-19-05132

PATIENT
  Age: 53 Year
  Sex: Female

DRUGS (2)
  1. LITHIUM. [Suspect]
     Active Substance: LITHIUM
     Indication: SCHIZOAFFECTIVE DISORDER
     Route: 065
  2. LITHIUM. [Suspect]
     Active Substance: LITHIUM
     Route: 065
     Dates: start: 2016, end: 201609

REACTIONS (8)
  - Toxicity to various agents [Not Recovered/Not Resolved]
  - Hyperparathyroidism [Recovered/Resolved]
  - Blood creatinine increased [Not Recovered/Not Resolved]
  - Parathyroid tumour benign [Recovered/Resolved]
  - Diabetes insipidus [Unknown]
  - Goitre [Recovered/Resolved]
  - Glomerular filtration rate decreased [Unknown]
  - Proteinuria [Unknown]

NARRATIVE: CASE EVENT DATE: 2016
